FAERS Safety Report 21909051 (Version 1)
Quarter: 2023Q1

REPORT INFORMATION
  Report Type: Spontaneous
  Country: US (occurrence: US)
  Receive Date: 20230125
  Receipt Date: 20230125
  Transmission Date: 20230417
  Serious: No
  Sender: FDA-Public Use
  Company Number: US-MYOVANT SCIENCES GMBH-2022MYSCI0900448

PATIENT
  Sex: Female

DRUGS (3)
  1. MYFEMBREE [Suspect]
     Active Substance: ESTRADIOL HEMIHYDRATE\NORETHINDRONE ACETATE\RELUGOLIX
     Indication: Heavy menstrual bleeding
     Dosage: 1 TAB, QD
     Route: 048
     Dates: start: 20220904
  2. HYDROXYCHLOROQUINE [Concomitant]
     Active Substance: HYDROXYCHLOROQUINE
     Indication: Systemic lupus erythematosus
     Dosage: 200 MILLIGRAM, 1 IN THE MORNING AND 1 IN THE EVENING
     Route: 065
  3. IMURAN                             /00001501/ [Concomitant]
     Indication: Systemic lupus erythematosus
     Dosage: 50 MILLIGRAM,1 IN THE MORNING, 1 AT NIGHT
     Route: 065

REACTIONS (1)
  - Palpitations [Unknown]
